FAERS Safety Report 4941189-5 (Version None)
Quarter: 2006Q1

REPORT INFORMATION
  Report Type: 
  Country: None (occurrence: None)
  Receive Date: 20060310
  Receipt Date: 20060310
  Transmission Date: 20060701
  Serious: Yes (Hospitalization)
  Sender: FDA-Public Use
  Company Number: None

PATIENT
  Age: 68 Year
  Sex: Female

DRUGS (2)
  1. LOVASTATIN [Suspect]
     Indication: HYPERLIPIDAEMIA
     Dosage: 80MG DAILY PO
     Route: 048
  2. GEMFIBROZIL [Suspect]
     Indication: HYPERLIPIDAEMIA
     Dosage: 300 MG DAILY PO
     Route: 048

REACTIONS (4)
  - ASTHENIA [None]
  - CHEST PAIN [None]
  - PAIN [None]
  - RHABDOMYOLYSIS [None]
